FAERS Safety Report 9101360 (Version 2)
Quarter: 2013Q1

REPORT INFORMATION
  Report Type: Spontaneous
  Country: US (occurrence: US)
  Receive Date: 20130218
  Receipt Date: 20130308
  Transmission Date: 20140127
  Serious: No
  Sender: FDA-Public Use
  Company Number: US-ASTRAZENECA-2013SE08711

PATIENT
  Age: 65 Year
  Sex: Female
  Weight: 55.8 kg

DRUGS (7)
  1. PULMICORT FLEXHALER [Suspect]
     Indication: ASTHMA
     Route: 055
     Dates: start: 2008
  2. RANITIDINE [Concomitant]
     Indication: GASTROOESOPHAGEAL REFLUX DISEASE
  3. NASONEX NASAL SPRAY [Concomitant]
     Indication: NASAL CONGESTION
  4. ARMOUR THYROID [Concomitant]
     Indication: THYROID DISORDER
  5. RESTASIS [Concomitant]
     Indication: DRY EYE
  6. ZIRTEC [Concomitant]
     Indication: MULTIPLE ALLERGIES
  7. ALBUTEROL [Concomitant]
     Indication: ASTHMA

REACTIONS (2)
  - Asthma [Unknown]
  - Circumstance or information capable of leading to medication error [Unknown]
